FAERS Safety Report 17169711 (Version 2)
Quarter: 2019Q4

REPORT INFORMATION
  Report Type: Spontaneous
  Country: US (occurrence: US)
  Receive Date: 20191218
  Receipt Date: 20191224
  Transmission Date: 20200122
  Serious: No
  Sender: FDA-Public Use
  Company Number: US-GW PHARMA-201912USGW4602

PATIENT

DRUGS (2)
  1. EPIDIOLEX [Suspect]
     Active Substance: CANNABIDIOL
     Indication: LENNOX-GASTAUT SYNDROME
     Dosage: 320 MILLIGRAM, BID
     Route: 048
     Dates: start: 20190830, end: 2019
  2. EPIDIOLEX [Suspect]
     Active Substance: CANNABIDIOL
     Dosage: 320 MILLIGRAM, QD
     Route: 048
     Dates: start: 201912

REACTIONS (3)
  - Weight decreased [Not Recovered/Not Resolved]
  - Hepatic enzyme abnormal [Not Recovered/Not Resolved]
  - Fatigue [Not Recovered/Not Resolved]

NARRATIVE: CASE EVENT DATE: 20191201
